FAERS Safety Report 8335920-9 (Version None)
Quarter: 2012Q2

REPORT INFORMATION
  Report Type: 
  Country: None (occurrence: None)
  Receive Date: 20120504
  Receipt Date: 20120501
  Transmission Date: 20120825
  Serious: No
  Sender: FDA-Public Use
  Company Number: US-PFIZER INC-2012106950

PATIENT
  Sex: Male
  Weight: 68 kg

DRUGS (13)
  1. LOPRESSOR [Concomitant]
     Dosage: 25 MG, 2X/DAY
  2. TIKOSYN [Suspect]
     Indication: ATRIAL FIBRILLATION
     Dosage: 0.25 MG, 2X/DAY
     Route: 048
     Dates: start: 20120301
  3. KLOR-CON [Concomitant]
     Dosage: UNK, 1X/DAY
  4. LASIX [Concomitant]
     Dosage: 40 MG, 1X/DAY
  5. XANAX [Concomitant]
     Dosage: 1 MG, 3X/DAY
  6. FENOFIBRATE [Concomitant]
     Indication: BLOOD CHOLESTEROL INCREASED
     Dosage: 160 MG, 1X/DAY
  7. COUMADIN [Concomitant]
     Dosage: UNK
  8. PRILOSEC [Concomitant]
     Dosage: 20 MG, 1X/DAY
  9. LISINOPRIL [Concomitant]
     Dosage: 2.5 MG, 1X/DAY
  10. ACETYLSALICYLIC ACID [Concomitant]
     Dosage: 325 MG, 1X/DAY
  11. PLAVIX [Concomitant]
     Dosage: 75 MG, 1X/DAY
  12. AMBIEN [Concomitant]
     Dosage: 10 MG, 1X/DAY
  13. TRAMADOL [Concomitant]
     Indication: PAIN
     Dosage: 50 MG, 3X/DAY
     Route: 048

REACTIONS (2)
  - HEARING IMPAIRED [None]
  - EAR DISCOMFORT [None]
